FAERS Safety Report 23818484 (Version 7)
Quarter: 2024Q3

REPORT INFORMATION
  Report Type: Report from Study
  Country: BR (occurrence: BR)
  Receive Date: 20240506
  Receipt Date: 20240829
  Transmission Date: 20241016
  Serious: Yes (Hospitalization)
  Sender: JOHNSON AND JOHNSON
  Company Number: BR-JNJFOC-20240483521

PATIENT
  Age: 27 Year
  Sex: Male
  Weight: 89 kg

DRUGS (6)
  1. INVEGA SUSTENNA [Suspect]
     Active Substance: PALIPERIDONE PALMITATE
     Indication: Schizophrenia
     Dosage: LAST APPLICATION WAS ON 19/AUG/2024
     Route: 030
     Dates: start: 20240304
  2. INVEGA SUSTENNA [Suspect]
     Active Substance: PALIPERIDONE PALMITATE
     Route: 030
  3. INVEGA SUSTENNA [Suspect]
     Active Substance: PALIPERIDONE PALMITATE
     Dosage: LAST APPLICATION ON 01/APR/2024
     Route: 030
  4. RISPERIDONE [Suspect]
     Active Substance: RISPERIDONE
     Indication: Product used for unknown indication
     Route: 065
  5. LITHIUM CARBONATE [Suspect]
     Active Substance: LITHIUM CARBONATE
  6. LITHIUM [Concomitant]
     Active Substance: LITHIUM

REACTIONS (7)
  - Depression [Recovered/Resolved]
  - Discouragement [Recovered/Resolved]
  - Somnolence [Recovered/Resolved]
  - Negative thoughts [Recovered/Resolved]
  - Drug ineffective [Unknown]
  - Chills [Recovering/Resolving]
  - Off label use [Unknown]
